FAERS Safety Report 6551078-0 (Version None)
Quarter: 2010Q1

REPORT INFORMATION
  Report Type: 
  Country: None (occurrence: None)
  Receive Date: 20100122
  Receipt Date: 20100122
  Transmission Date: 20100710
  Serious: Yes (Life-Threatening, Hospitalization, Disabling, Other)
  Sender: FDA-Public Use
  Company Number: None

PATIENT
  Age: 55 Year
  Sex: Female
  Weight: 61.2356 kg

DRUGS (1)
  1. ACLASTA NOVARTIS [Suspect]
     Indication: OSTEOPOROSIS
     Dosage: ONE BOTTLE ONCE ANNUALLY IV DRIP
     Route: 041
     Dates: start: 20091020, end: 20091020

REACTIONS (3)
  - ABDOMINAL PAIN [None]
  - SMALL INTESTINAL OBSTRUCTION [None]
  - VOMITING [None]
